FAERS Safety Report 8026243-6 (Version None)
Quarter: 2012Q1

REPORT INFORMATION
  Report Type: 
  Country: None (occurrence: None)
  Receive Date: 20120105
  Receipt Date: 20110316
  Transmission Date: 20120608
  Serious: No
  Sender: FDA-Public Use
  Company Number: US-ABBOTT-11P-163-0712650-00

PATIENT
  Sex: Female
  Weight: 51.756 kg

DRUGS (3)
  1. PRAVASTATIN [Concomitant]
     Indication: BLOOD CHOLESTEROL INCREASED
     Dates: start: 20110201
  2. SYNTHROID [Suspect]
     Indication: HYPOTHYROIDISM
  3. VITAMIN D [Concomitant]
     Indication: VITAMIN SUPPLEMENTATION
     Dates: start: 20101201

REACTIONS (4)
  - NERVOUSNESS [None]
  - BLOOD THYROID STIMULATING HORMONE DECREASED [None]
  - INSOMNIA [None]
  - HYPERTENSION [None]
